FAERS Safety Report 5276275-6 (Version None)
Quarter: 2007Q1

REPORT INFORMATION
  Report Type: 
  Country: None (occurrence: None)
  Receive Date: 20070326
  Receipt Date: 20070314
  Transmission Date: 20070707
  Serious: Yes (Other)
  Sender: FDA-Public Use
  Company Number: US-PFIZER INC-2007002435

PATIENT
  Sex: Female
  Weight: 52.2 kg

DRUGS (6)
  1. SUTENT [Suspect]
     Indication: RENAL CELL CARCINOMA STAGE UNSPECIFIED
  2. NORVASC [Concomitant]
     Indication: BLOOD PRESSURE
  3. PAXIL [Concomitant]
  4. VITAMINS [Concomitant]
  5. VITAMIN B-12 [Concomitant]
  6. OVRAL [Concomitant]
     Indication: ORAL CONTRACEPTION

REACTIONS (7)
  - HAEMORRHAGE [None]
  - HYPERTENSION [None]
  - MENORRHAGIA [None]
  - OLIGOMENORRHOEA [None]
  - PHARYNGITIS [None]
  - VAGINAL HAEMORRHAGE [None]
  - WEIGHT DECREASED [None]
